FAERS Safety Report 9052103 (Version 1)
Quarter: 2013Q1

REPORT INFORMATION
  Report Type: Spontaneous
  Country: US (occurrence: None)
  Receive Date: 20130131
  Receipt Date: 20130131
  Transmission Date: 20140127
  Serious: Yes (Hospitalization)
  Sender: FDA-Public Use
  Company Number: None

PATIENT
  Age: 53 Year
  Sex: Female
  Weight: 98.2 kg

DRUGS (10)
  1. MELOXICAM [Suspect]
     Indication: PAIN
     Route: 048
  2. EXEDRIN (APAP,ASA,CAFFEINE) [Suspect]
     Indication: PAIN
     Dosage: 2 TABLETS BID PRN PAIN PO ?CHRONIC
     Route: 048
  3. ALPRAZOLAM [Concomitant]
  4. BACLOFEN [Concomitant]
  5. METFORMIN [Concomitant]
  6. LISINOPRIL [Concomitant]
  7. SIMVASTATIN [Concomitant]
  8. APAP/OXYCODONE [Concomitant]
  9. GABAPENTIN [Concomitant]
  10. LACTULOSE [Concomitant]

REACTIONS (3)
  - Upper gastrointestinal haemorrhage [None]
  - Gastric ulcer [None]
  - Oesophagitis [None]
